FAERS Safety Report 7222973-4 (Version None)
Quarter: 2011Q1

REPORT INFORMATION
  Report Type: 
  Country: None (occurrence: None)
  Receive Date: 20110112
  Receipt Date: 20110111
  Transmission Date: 20110831
  Serious: Yes (Life-Threatening, Hospitalization, Other)
  Sender: FDA-Public Use
  Company Number: PHHO2010BE18850

PATIENT
  Sex: Male
  Weight: 95 kg

DRUGS (3)
  1. AMLOR [Concomitant]
     Indication: HYPERTENSION
     Dosage: UNK
     Dates: start: 20090422
  2. FTY 720 [Suspect]
     Indication: MULTIPLE SCLEROSIS
     Dosage: DOSE BLINDED
     Route: 048
     Dates: start: 20090120, end: 20100202
  3. FTY 720 [Suspect]
     Dosage: 0.5 MG, QD
     Route: 048
     Dates: start: 20100202, end: 20101214

REACTIONS (20)
  - CHEST PAIN [None]
  - JUGULAR VEIN DISTENSION [None]
  - TACHYCARDIA [None]
  - COUGH [None]
  - CONCOMITANT DISEASE PROGRESSION [None]
  - PULMONARY OEDEMA [None]
  - HYPERTENSION [None]
  - ACUTE MYOCARDIAL INFARCTION [None]
  - ORTHOPNOEA [None]
  - RALES [None]
  - ARTERIOSCLEROSIS CORONARY ARTERY [None]
  - DYSPNOEA [None]
  - VENTRICULAR HYPOKINESIA [None]
  - RHONCHI [None]
  - CORONARY ARTERY OCCLUSION [None]
  - DIASTOLIC DYSFUNCTION [None]
  - CORONARY ANGIOPLASTY [None]
  - CYANOSIS [None]
  - CARDIAC MURMUR [None]
  - PROLONGED EXPIRATION [None]
